FAERS Safety Report 14210320 (Version 1)
Quarter: 2017Q4

REPORT INFORMATION
  Report Type: Spontaneous
  Country: CA (occurrence: CA)
  Receive Date: 20171121
  Receipt Date: 20171121
  Transmission Date: 20180321
  Serious: Yes (Hospitalization)
  Sender: FDA-Public Use
  Company Number: CA-PFIZER INC-2017498827

PATIENT
  Age: 48 Year
  Sex: Female

DRUGS (1)
  1. XELJANZ [Suspect]
     Active Substance: TOFACITINIB CITRATE
     Indication: RHEUMATOID ARTHRITIS
     Dosage: 5 MG, TWICE DAILY
     Route: 048
     Dates: start: 20171019, end: 20171106

REACTIONS (10)
  - Hypoaesthesia [Unknown]
  - Headache [Unknown]
  - Flatulence [Unknown]
  - Malaise [Recovering/Resolving]
  - Arthralgia [Unknown]
  - Diarrhoea [Unknown]
  - Decreased appetite [Unknown]
  - Respiratory disorder [Unknown]
  - Infection [Unknown]
  - Insomnia [Unknown]

NARRATIVE: CASE EVENT DATE: 201710
